FAERS Safety Report 9227077 (Version 1)
Quarter: 2013Q2

REPORT INFORMATION
  Report Type: Spontaneous
  Country: PL (occurrence: None)
  Receive Date: 20130410
  Receipt Date: 20130410
  Transmission Date: 20140414
  Serious: Yes (Other)
  Sender: FDA-Public Use
  Company Number: B0881274A

PATIENT
  Sex: 0

DRUGS (5)
  1. MELPHALAN [Suspect]
     Indication: PRODUCT USED FOR UNKNOWN INDICATION
     Dosage: 140 MG/M2/ UNK /UNKNOWN
  2. CARMUSTINE [Suspect]
     Indication: PRODUCT USED FOR UNKNOWN INDICATION
     Dosage: 300 MG/M2 / UNK/ UNKNOWN
  3. ETOPOSIDE [Suspect]
     Indication: PRODUCT USED FOR UNKNOWN INDICATION
     Dosage: 800 MG/M2/ UNK/ UNKNOWN
  4. CYTARABINE [Suspect]
     Indication: PRODUCT USED FOR UNKNOWN INDICATION
  5. DEXAMETHASONE [Suspect]
     Indication: PRODUCT USED FOR UNKNOWN INDICATION
     Dosage: UNK/ UNK/ UNKNOWN

REACTIONS (1)
  - Thyroid cancer [None]
